FAERS Safety Report 16305553 (Version 4)
Quarter: 2019Q4

REPORT INFORMATION
  Report Type: Report from Study
  Country: US (occurrence: US)
  Receive Date: 20190513
  Receipt Date: 20191008
  Transmission Date: 20200122
  Serious: Yes (Hospitalization, Other)
  Sender: FDA-Public Use
  Company Number: US-BAYER-2019-094145

PATIENT
  Age: 57 Year
  Sex: Female

DRUGS (1)
  1. BETASERON [Suspect]
     Active Substance: INTERFERON BETA-1B
     Indication: MULTIPLE SCLEROSIS RELAPSE
     Dosage: 0.25 MG, QOD
     Route: 058
     Dates: start: 20130812

REACTIONS (7)
  - Depression [Not Recovered/Not Resolved]
  - Hypotension [None]
  - Seizure [None]
  - Surgery [None]
  - Arthritis bacterial [None]
  - Decreased interest [Not Recovered/Not Resolved]
  - Hospitalisation [Unknown]

NARRATIVE: CASE EVENT DATE: 20190515
